FAERS Safety Report 7736386-X (Version None)
Quarter: 2011Q3

REPORT INFORMATION
  Report Type: 
  Country: None (occurrence: None)
  Receive Date: 20110902
  Receipt Date: 20110819
  Transmission Date: 20111222
  Serious: Yes (Hospitalization, Other)
  Sender: FDA-Public Use
  Company Number: CIP11000506

PATIENT
  Age: 75 Year
  Sex: Female
  Weight: 75.9 kg

DRUGS (12)
  1. ALL OTHER THERAPEUTIC PRODUCTS [Concomitant]
  2. FOSAMAX [Suspect]
     Indication: OSTEOPOROSIS
     Dosage: 70 MG WEEKLY, ORAL ; 5 MG DAILY, ORAL; 10 MG, DAILY, ORAL
     Route: 048
     Dates: start: 20010110, end: 20010305
  3. FOSAMAX [Suspect]
     Indication: OSTEOPOROSIS
     Dosage: 70 MG WEEKLY, ORAL ; 5 MG DAILY, ORAL; 10 MG, DAILY, ORAL
     Route: 048
     Dates: start: 20010305, end: 20010316
  4. FOSAMAX [Suspect]
     Indication: OSTEOPOROSIS
     Dosage: 70 MG WEEKLY, ORAL ; 5 MG DAILY, ORAL; 10 MG, DAILY, ORAL
     Route: 048
     Dates: start: 20010316, end: 20040623
  5. CALTRATE /00108001/ (CALCIUM CARBONATE) [Concomitant]
  6. ASPIRIN [Concomitant]
  7. ACTONEL [Suspect]
     Dosage: 35 MG, ORAL
     Route: 048
     Dates: start: 20041029, end: 20050324
  8. HYZAAR /01284801/ (HYDROCHLOROTHIAZIDE, LOSARTAN POTASSIUM) [Concomitant]
  9. AMLODIPINE BESILYATE (AMLODIPINE BESILATE) [Concomitant]
  10. NEXIUM [Concomitant]
  11. BONIVA [Suspect]
     Dosage: 150 MG, ORAL
     Route: 048
     Dates: start: 20051102, end: 20090622
  12. ZOCOR [Concomitant]

REACTIONS (11)
  - STRESS FRACTURE [None]
  - TENDERNESS [None]
  - GAIT DISTURBANCE [None]
  - ARTHRALGIA [None]
  - RADICULAR PAIN [None]
  - FEMUR FRACTURE [None]
  - MUSCULOSKELETAL PAIN [None]
  - PAIN IN EXTREMITY [None]
  - GROIN PAIN [None]
  - ACTIVITIES OF DAILY LIVING IMPAIRED [None]
  - SENSORY DISTURBANCE [None]
